FAERS Safety Report 4961767-7 (Version None)
Quarter: 2006Q2

REPORT INFORMATION
  Report Type: 
  Country: None (occurrence: None)
  Receive Date: 20060404
  Receipt Date: 20051010
  Transmission Date: 20061013
  Serious: Yes (Hospitalization, Other)
  Sender: FDA-Public Use
  Company Number: PHNU2005DE03426

PATIENT
  Age: 74 Year
  Sex: Female
  Weight: 64 kg

DRUGS (5)
  1. CARBOPLATIN [Concomitant]
     Indication: BREAST CANCER METASTATIC
     Dosage: UNK, UNK
     Route: 042
     Dates: start: 20051001, end: 20060101
  2. ZOMETA [Suspect]
     Indication: METASTASES TO BONE
     Dosage: 4 MG, TIW
     Route: 042
     Dates: start: 20010601, end: 20051001
  3. CAELYX [Concomitant]
     Indication: BREAST CANCER METASTATIC
     Dosage: 40 MG, UNK
     Route: 042
     Dates: start: 20041001, end: 20051001
  4. CAELYX [Concomitant]
     Dosage: 20 MG, UNK
     Route: 042
     Dates: start: 20051001, end: 20051101
  5. ANTHRACYCLINES [Concomitant]
     Route: 065

REACTIONS (8)
  - DENTAL OPERATION [None]
  - GENERAL ANAESTHESIA [None]
  - JAW OPERATION [None]
  - OSTEOLYSIS [None]
  - OSTEONECROSIS [None]
  - SEQUESTRECTOMY [None]
  - TOOTH EXTRACTION [None]
  - X-RAY DENTAL [None]
